FAERS Safety Report 15572020 (Version 1)
Quarter: 2018Q4

REPORT INFORMATION
  Report Type: Spontaneous
  Country: US (occurrence: US)
  Receive Date: 20181031
  Receipt Date: 20181031
  Transmission Date: 20190205
  Serious: No
  Sender: FDA-Public Use
  Company Number: US-EMMAUS MEDICAL, INC.-EMM201809-000530

PATIENT
  Sex: Female

DRUGS (6)
  1. CLONAZEPAM. [Concomitant]
     Active Substance: CLONAZEPAM
  2. ENDARI [Suspect]
     Active Substance: GLUTAMINE
     Indication: SICKLE CELL DISEASE
     Route: 048
     Dates: start: 20180223
  3. HYDROMORPHONE [Concomitant]
     Active Substance: HYDROMORPHONE
  4. HYDROCHLOR [Concomitant]
  5. GABAPENTIN. [Concomitant]
     Active Substance: GABAPENTIN
  6. HYDROXYUREA. [Concomitant]
     Active Substance: HYDROXYUREA

REACTIONS (1)
  - Product dose omission [Unknown]
